FAERS Safety Report 18538344 (Version 1)
Quarter: 2020Q4

REPORT INFORMATION
  Report Type: Spontaneous
  Country: AU (occurrence: AU)
  Receive Date: 20201123
  Receipt Date: 20201123
  Transmission Date: 20210114
  Serious: Yes (Hospitalization, Other)
  Sender: FDA-Public Use
  Company Number: AU-CANTON LABORATORIES, LLC-2096211

PATIENT
  Age: 53 Year
  Sex: Male

DRUGS (11)
  1. MIRTAZAPINE. [Suspect]
     Active Substance: MIRTAZAPINE
     Route: 065
  2. METFORMIN [Suspect]
     Active Substance: METFORMIN HYDROCHLORIDE
     Route: 065
  3. BISOPROLOL FUMARATE. [Suspect]
     Active Substance: BISOPROLOL FUMARATE
     Route: 065
  4. DIPYRIDAMOLE. [Suspect]
     Active Substance: DIPYRIDAMOLE
     Route: 065
  5. VOLIBRIS [Suspect]
     Active Substance: AMBRISENTAN
     Route: 048
     Dates: start: 20200327
  6. VENLAFAXINE [Suspect]
     Active Substance: VENLAFAXINE HYDROCHLORIDE
     Route: 065
  7. HUMALOG [Suspect]
     Active Substance: INSULIN LISPRO
     Route: 065
  8. NAPROSYN [Suspect]
     Active Substance: NAPROXEN
     Indication: PRODUCT USED FOR UNKNOWN INDICATION
     Route: 065
  9. ATORVASTATIN CALCIUM. [Suspect]
     Active Substance: ATORVASTATIN CALCIUM
     Route: 065
  10. ESOMEPRAZOLE. [Suspect]
     Active Substance: ESOMEPRAZOLE MAGNESIUM
     Route: 065
  11. TADALAFIL. [Suspect]
     Active Substance: TADALAFIL
     Route: 048

REACTIONS (4)
  - Oedema peripheral [Recovering/Resolving]
  - Right ventricular failure [Unknown]
  - Condition aggravated [Unknown]
  - Dyspnoea [Unknown]
